FAERS Safety Report 4868451-9 (Version None)
Quarter: 2005Q4

REPORT INFORMATION
  Report Type: 
  Country: None (occurrence: None)
  Receive Date: 20051227
  Receipt Date: 20051215
  Transmission Date: 20060501
  Serious: Yes (Hospitalization, Other)
  Sender: FDA-Public Use
  Company Number: HQWYE827605DEC05

PATIENT
  Age: 64 Year
  Sex: Male
  Weight: 117 kg

DRUGS (24)
  1. RAPAMUNE [Suspect]
     Indication: PROPHYLAXIS AGAINST TRANSPLANT REJECTION
     Dosage: 8 MG 1X PER 1 DAY, ORAL; SEE IMAGE
     Route: 048
     Dates: start: 20050121, end: 20051201
  2. RAPAMUNE [Suspect]
     Indication: PROPHYLAXIS AGAINST TRANSPLANT REJECTION
     Dosage: 8 MG 1X PER 1 DAY, ORAL; SEE IMAGE
     Route: 048
     Dates: start: 20051201
  3. CELLCEPT [Suspect]
     Indication: PROPHYLAXIS AGAINST TRANSPLANT REJECTION
     Dosage: 1 G 2X PER 1 DAY, ORAL
     Route: 048
  4. PREDNISONE [Suspect]
     Indication: PROPHYLAXIS AGAINST TRANSPLANT REJECTION
     Dosage: 5 MG 1X PER 1 DAY, ORAL
     Route: 048
  5. DARVOCET-N 50 [Concomitant]
  6. SYNTHROID [Concomitant]
  7. PREVACID [Concomitant]
  8. FERROUS SULFATE TAB [Concomitant]
  9. LEXAPRO [Concomitant]
  10. ZOCOR [Concomitant]
  11. HYDRALAZINE HCL [Concomitant]
  12. PROCRIT [Concomitant]
  13. LOPID [Concomitant]
  14. POTASSIUM CHLORIDE [Concomitant]
  15. CIPRO [Concomitant]
  16. LASIX [Concomitant]
  17. ACTOS [Concomitant]
  18. LOPRESSOR [Concomitant]
  19. MULTIVITAMINS, PLAIN (MULTIVITAMINS, PLAIN) [Concomitant]
  20. BACTRIM [Concomitant]
  21. ZAROXOLYN [Concomitant]
  22. ASPIRIN [Concomitant]
  23. LANTUS [Concomitant]
  24. NOVOLOG [Concomitant]

REACTIONS (15)
  - ALPHA HAEMOLYTIC STREPTOCOCCAL INFECTION [None]
  - COMPLICATIONS OF TRANSPLANTED KIDNEY [None]
  - CORYNEBACTERIUM INFECTION [None]
  - DYSPNOEA [None]
  - FLUID OVERLOAD [None]
  - GENERALISED OEDEMA [None]
  - MITRAL VALVE INCOMPETENCE [None]
  - OEDEMA [None]
  - PERICARDIAL EFFUSION [None]
  - RENAL ARTERY STENOSIS [None]
  - STAPHYLOCOCCAL INFECTION [None]
  - TRANSPLANT REJECTION [None]
  - TRICUSPID VALVE INCOMPETENCE [None]
  - TUBULOINTERSTITIAL NEPHRITIS [None]
  - WOUND INFECTION PSEUDOMONAS [None]
